FAERS Safety Report 9215271 (Version 2)
Quarter: 2013Q2

REPORT INFORMATION
  Report Type: Spontaneous
  Country: US (occurrence: US)
  Receive Date: 20130405
  Receipt Date: 20130506
  Transmission Date: 20140414
  Serious: Yes (Other)
  Sender: FDA-Public Use
  Company Number: US-PFIZER INC-2013104182

PATIENT
  Age: 59 Year
  Sex: Male

DRUGS (38)
  1. LIPITOR [Suspect]
     Indication: BLOOD CHOLESTEROL
     Dosage: 40 MG, ONCE IN THE EVENING
  2. ACETAMINOPHEN [Concomitant]
     Indication: PAIN
     Dosage: 500 MG (ONE OR TWO), AS NEEDED
  3. ACTOS [Concomitant]
     Indication: DIABETES MELLITUS
     Dosage: 15 MG, ONE IN THE MORNING
  4. ALLOPURINOL [Concomitant]
     Indication: GOUT
     Dosage: 300 MG, ONE IN THE MORNING
  5. XANAX [Concomitant]
     Indication: ANXIETY
     Dosage: 0.25 MG, ONE IN THE MORNING
  6. ASPIRIN [Concomitant]
     Indication: CARDIAC DISORDER
     Dosage: 325 MG, OEN IN THE MORNING
  7. BIOTIN [Concomitant]
     Indication: NAIL DISORDER
     Dosage: 1000 UG, ONE IN THE MORNING
  8. BIOTIN [Concomitant]
     Indication: HAIR DISORDER
  9. CICLOPIROX [Concomitant]
     Indication: RASH
     Dosage: UNK , 2X/DAY AS NEEDED
  10. CITALOPRAM [Concomitant]
     Indication: DEPRESSION
     Dosage: 10 MG, ONE IN THE MORNING
  11. CO-Q-10 [Concomitant]
     Dosage: 400 MG (ONE OR TWO), AS NEEDED
  12. FENOFIBRATE [Concomitant]
     Indication: LIPIDS
     Dosage: 160 MG, ONE IN THE MORNING
  13. FLUTICASONE PROPIONATE [Concomitant]
     Indication: NASAL DISORDER
     Dosage: 100 UG (2 SPRAYS OF 50 UG IN EACH NOSTRIL), 2X/DAY
     Route: 045
  14. FUROSEMIDE [Concomitant]
     Indication: DIURETIC THERAPY
     Dosage: 40 MG, ONE IN THE MORNING
  15. GABAPENTIN [Concomitant]
     Indication: DIABETIC NEUROPATHY
     Dosage: 100 MG, ONE IN THE MORNING AND ONE IN THE EVENING
  16. GLUCOSAMINE HYDROCHLORIDE/CHONDROITIN SULFATE [Concomitant]
     Indication: BONE DISORDER
     Dosage: [GLUCOSAMINE 750 MG]/ [CHONDROITIN 600 MG], TWO IN THE MORNING
  17. MAGNESIUM OXIDE [Concomitant]
     Indication: MAGNESIUM DEFICIENCY
     Dosage: 200 MG (1/2 OF 400 MG), IN THE MORNING AND IN THE EVENING
  18. METFORMIN [Concomitant]
     Indication: DIABETES MELLITUS
     Dosage: 1000 MG (2 OF 500 MG), BEFORE BREAKFAST AND BEFORE SUPPER
  19. METOCLOPRAMIDE [Concomitant]
     Indication: DYSPEPSIA
     Dosage: 10 MG, ONE BEFORE BREAKFAST AND BEFORE SUPPER
  20. METOPROLOL TARTRATE [Concomitant]
     Indication: CARDIAC DISORDER
     Dosage: 12.5 MG (1/2 OF 25 MG), IN THE MORNING AND IN THE EVENING
  21. MONTELUKAST [Concomitant]
     Indication: ASTHMA
     Dosage: 10 MG, ONE IN THE EVENING
  22. BUDESONIDE [Concomitant]
     Dosage: 2 VIALS OF 0.5 MG/ 2ML, 2X/DAY AS NEEDED
  23. XOPENEX [Concomitant]
     Dosage: 1 VIAL, EVERY 4 HRS AS NEEDED
  24. NITROSTAT [Concomitant]
     Indication: ANGINA PECTORIS
     Dosage: 0.4 MG, AS NEEDED
     Route: 048
  25. OMEGA-3 [Concomitant]
     Dosage: 1400 MG, 3X/DAYONE IN MORNING, AT SUPPER, AND AT EVENING
  26. PROTONIX [Concomitant]
     Indication: GASTRITIS
     Dosage: 40 MG, ONE BEFORE BREAKFAST
  27. PANTANASE [Concomitant]
     Indication: NASAL DISORDER
     Dosage: 1330 UG (2 OF THE 665 UG SPRAYS), 2X/DAY IN EACH NOSTRIL
     Route: 045
  28. POTASSIUM CHLORIDE [Concomitant]
     Dosage: 20 UG, ONE IN THE MORNING WITH WATER PILL
  29. ZANTAC [Concomitant]
     Indication: GASTRITIS
     Dosage: 300 MG, ONE IN THE EVENING
  30. SYMBICORT [Concomitant]
     Indication: ASTHMA
     Dosage: [BUDESONIDE 160 UG]/ [FORMOTEROL FUMARATE 4.5 MCG], 2 PUFFS IN THE MORNING AND IN THE EVENING
     Route: 055
  31. SYSTANE BALANCE [Concomitant]
     Indication: DRY EYE
     Dosage: 1 GTT, 2X/DAY
     Route: 047
  32. TRAZODONE [Concomitant]
     Indication: SLEEP DISORDER
     Dosage: 100 MG, ONE AT BEDTIME AS NEEDED
  33. TOVIAZ [Concomitant]
     Indication: BLADDER DISORDER
     Dosage: 8 MG, ONE IN THE MORNING
  34. VITAMIN B12 [Concomitant]
     Dosage: 2500 UG, ONE IN THE MORNING
  35. VITAMIN D3 [Concomitant]
     Dosage: 5000 IU, OEN IN THE MORNING
  36. XOPENEX HFA [Concomitant]
     Dosage: 90 UG (2 PUFFS OF 45 MCG), AS NEEDED
     Route: 055
  37. WARFARIN [Concomitant]
     Indication: ANTICOAGULANT THERAPY
     Dosage: 5 MG, 1 ON MON, THURS; % ON TUES, WED, FRI, SAT, SUN
  38. ZETIA [Concomitant]
     Indication: BLOOD CHOLESTEROL
     Dosage: 10 MG, ONE IN THE EVENING

REACTIONS (4)
  - Angina pectoris [Unknown]
  - Gastritis [Unknown]
  - Bladder disorder [Unknown]
  - Blood cholesterol abnormal [Unknown]
